FAERS Safety Report 11342161 (Version 6)
Quarter: 2015Q3

REPORT INFORMATION
  Report Type: Report from Study
  Country: JP (occurrence: JP)
  Receive Date: 20150805
  Receipt Date: 20150814
  Transmission Date: 20151125
  Serious: Yes (Death, Life-Threatening, Hospitalization, Other)
  Sender: FDA-Public Use
  Company Number: JP-JPN-A200704444

PATIENT
  Age: 49 Year
  Sex: Male

DRUGS (22)
  1. ABACAVIR SULFATE + LAMIVUDINE [Suspect]
     Active Substance: ABACAVIR SULFATE\LAMIVUDINE
     Indication: ACQUIRED IMMUNODEFICIENCY SYNDROME
     Dosage: 1 DF, QD (CONC: 300/600 MG)
     Route: 048
     Dates: start: 20061212, end: 20070319
  2. REYATAZ [Concomitant]
     Active Substance: ATAZANAVIR SULFATE
     Indication: ACQUIRED IMMUNODEFICIENCY SYNDROME
     Dosage: 400 MG, UNK
     Route: 048
     Dates: start: 20070224, end: 20070319
  3. SULFADIAZINE. [Concomitant]
     Active Substance: SULFADIAZINE
     Indication: CEREBRAL TOXOPLASMOSIS
     Dosage: UNK
     Dates: start: 20070414
  4. INOVAN [Concomitant]
     Active Substance: DOPAMINE HYDROCHLORIDE
     Indication: SHOCK
     Dosage: UNK
     Route: 042
     Dates: start: 20070414
  5. DIFLUCAN [Concomitant]
     Active Substance: FLUCONAZOLE
     Indication: OESOPHAGEAL CANDIDIASIS
     Dosage: 100 MG, UNK
     Route: 065
     Dates: start: 20061108, end: 20070127
  6. CATABON [Concomitant]
     Active Substance: DOPAMINE HYDROCHLORIDE
     Indication: SHOCK
     Dosage: UNK
     Route: 042
     Dates: start: 20070414
  7. ZITHROMAC [Concomitant]
     Active Substance: AZITHROMYCIN DIHYDRATE
     Indication: MYCOBACTERIUM AVIUM COMPLEX INFECTION
     Dosage: UNK
     Route: 048
     Dates: start: 20061106
  8. FOLIAMIN [Concomitant]
     Active Substance: FOLIC ACID
     Indication: CEREBRAL TOXOPLASMOSIS
     Dosage: 150 MG, QD
     Route: 048
     Dates: start: 20070414
  9. COMBIVIR [Suspect]
     Active Substance: LAMIVUDINE\ZIDOVUDINE
     Indication: ACQUIRED IMMUNODEFICIENCY SYNDROME
     Dosage: UNK
     Route: 048
     Dates: start: 20061114, end: 20061211
  10. KALETRA [Suspect]
     Active Substance: LOPINAVIR\RITONAVIR
     Indication: ACQUIRED IMMUNODEFICIENCY SYNDROME
     Dosage: UNK
     Route: 048
     Dates: start: 20061114
  11. BAKTAR [Concomitant]
     Active Substance: SULFAMETHOXAZOLE\TRIMETHOPRIM
     Indication: ANTIFUNGAL PROPHYLAXIS
     Dosage: UNK, QD
     Route: 048
     Dates: start: 20061106, end: 20061122
  12. UNKNOWN DRUG [Concomitant]
     Active Substance: UNSPECIFIED INGREDIENT
     Indication: ANTIFUNGAL PROPHYLAXIS
     Dosage: 750 MG, BID
     Route: 065
     Dates: start: 20061122
  13. GASTER [Concomitant]
     Active Substance: FAMOTIDINE
     Indication: PROPHYLAXIS AGAINST GASTROINTESTINAL ULCER
     Dosage: 20 MG, QD
     Route: 042
     Dates: start: 20070307, end: 20070414
  14. FUROSEMIDE. [Concomitant]
     Active Substance: FUROSEMIDE
     Indication: HYPOALBUMINAEMIA
     Dosage: 20 MG, QD
     Route: 042
     Dates: start: 20070312, end: 20070414
  15. MEBRON [Concomitant]
     Indication: ANTIFUNGAL PROPHYLAXIS
     Dosage: 1500 MG, QD
     Route: 048
     Dates: start: 20070414
  16. FRAGMIN [Concomitant]
     Active Substance: DALTEPARIN SODIUM
     Indication: CEREBRAL TOXOPLASMOSIS
     Dosage: UNK
     Route: 042
     Dates: start: 20070414
  17. FOSCAVIR [Suspect]
     Active Substance: FOSCARNET SODIUM
     Indication: ENCEPHALITIS CYTOMEGALOVIRUS
     Dosage: UNK, BID
     Route: 042
     Dates: start: 20061123, end: 20070201
  18. ROCEPHIN [Concomitant]
     Active Substance: CEFTRIAXONE SODIUM
     Indication: SYPHILIS
     Dosage: UNK, QD
     Route: 042
     Dates: start: 20061025, end: 20061123
  19. GASTER [Concomitant]
     Active Substance: FAMOTIDINE
     Indication: PROPHYLAXIS AGAINST GASTROINTESTINAL ULCER
     Dosage: 10 MG, QD
     Route: 048
     Dates: start: 20061116, end: 20070306
  20. MUCOSTA [Concomitant]
     Active Substance: REBAMIPIDE
     Indication: PROPHYLAXIS AGAINST GASTROINTESTINAL ULCER
     Dosage: 100 MG, TID
     Route: 042
     Dates: start: 20070116, end: 20070228
  21. VALIXA [Suspect]
     Active Substance: VALGANCICLOVIR
     Indication: ENCEPHALITIS CYTOMEGALOVIRUS
     Dosage: UNK, BID
     Route: 048
     Dates: start: 20061123
  22. FUNGIZONE [Concomitant]
     Active Substance: AMPHOTERICIN B
     Indication: INFECTION PROPHYLAXIS
     Dosage: UNK
     Route: 002
     Dates: start: 20061103, end: 20070210

REACTIONS (20)
  - Pancytopenia [Fatal]
  - C-reactive protein increased [Fatal]
  - Meningism [Unknown]
  - Hyperthermia [Unknown]
  - Haemoglobin decreased [Unknown]
  - Staphylococcal infection [Unknown]
  - Acute respiratory failure [Fatal]
  - Cerebral toxoplasmosis [Fatal]
  - Respiratory arrest [Fatal]
  - Encephalitis [Fatal]
  - Circulatory collapse [Fatal]
  - Disseminated intravascular coagulation [Fatal]
  - Staphylococcal sepsis [Fatal]
  - Streptococcal infection [Unknown]
  - Eating disorder [Not Recovered/Not Resolved]
  - Bone marrow failure [Recovered/Resolved]
  - Musculoskeletal stiffness [Unknown]
  - Loss of consciousness [Fatal]
  - Pneumothorax [Recovered/Resolved]
  - Hypoalbuminaemia [Unknown]

NARRATIVE: CASE EVENT DATE: 20061204
